FAERS Safety Report 7100487-X (Version None)
Quarter: 2010Q4

REPORT INFORMATION
  Report Type: 
  Country: None (occurrence: None)
  Receive Date: 20101113
  Receipt Date: 20100210
  Transmission Date: 20110411
  Serious: No
  Sender: FDA-Public Use
  Company Number: US-ALLERGAN-1001680US

PATIENT
  Sex: Female

DRUGS (2)
  1. BOTOXA? [Suspect]
     Indication: MUSCLE SPASMS
     Dosage: 100 UNITS, SINGLE
     Route: 030
     Dates: start: 20100208, end: 20100208
  2. SINGULAIR [Concomitant]
     Indication: ASTHMA

REACTIONS (4)
  - CHILLS [None]
  - DIZZINESS [None]
  - PRURITUS GENERALISED [None]
  - VISION BLURRED [None]
